FAERS Safety Report 7786597-2 (Version None)
Quarter: 2011Q3

REPORT INFORMATION
  Report Type: 
  Country: None (occurrence: None)
  Receive Date: 20110929
  Receipt Date: 20110916
  Transmission Date: 20111222
  Serious: Yes (Hospitalization, Other)
  Sender: FDA-Public Use
  Company Number: CA-ELI_LILLY_AND_COMPANY-CA201109004543

PATIENT
  Sex: Male

DRUGS (18)
  1. METHOTRIMEPRAZINE [Concomitant]
  2. CHLORPROMAZINE [Concomitant]
  3. LORAZEPAM [Concomitant]
  4. LOXAPINE [Concomitant]
  5. DIAZEPAM [Concomitant]
  6. ZYPREXA [Suspect]
     Indication: SCHIZOAFFECTIVE DISORDER
     Dosage: 25 MG, UNK
  7. QUETIAPINE [Concomitant]
  8. HALOPERIDOL [Concomitant]
  9. CARBAMAZEPINE [Concomitant]
  10. LASIX [Concomitant]
  11. BENZTROPINE MESYLATE [Concomitant]
  12. CLONAZEPAM [Concomitant]
  13. ZYPREXA [Suspect]
     Dosage: 50 MG, UNK
  14. VALPROIC ACID [Concomitant]
  15. ZOPICLONE [Concomitant]
  16. ZYPREXA [Suspect]
     Dosage: 35 MG, UNK
  17. RISPERIDONE [Concomitant]
  18. SULPIRIDE [Concomitant]

REACTIONS (14)
  - RENAL FAILURE CHRONIC [None]
  - DIABETIC KETOACIDOSIS [None]
  - DIABETIC COMA [None]
  - BLOOD AMYLASE INCREASED [None]
  - ELECTROCARDIOGRAM QT PROLONGED [None]
  - HYPERCHOLESTEROLAEMIA [None]
  - WEIGHT INCREASED [None]
  - PANCREATITIS [None]
  - BLOOD TRIGLYCERIDES INCREASED [None]
  - HYPEROSMOLAR STATE [None]
  - HYPERGLYCAEMIA [None]
  - TYPE 2 DIABETES MELLITUS [None]
  - OEDEMA PERIPHERAL [None]
  - OVERDOSE [None]
